FAERS Safety Report 18289498 (Version 1)
Quarter: 2020Q3

REPORT INFORMATION
  Report Type: Spontaneous
  Country: US (occurrence: US)
  Receive Date: 20200921
  Receipt Date: 20200921
  Transmission Date: 20201103
  Serious: No
  Sender: FDA-Public Use
  Company Number: US-BRAINTREE LABORATORIES-190689

PATIENT
  Age: 68 Year
  Sex: Male
  Weight: 109.31 kg

DRUGS (1)
  1. SUPREP BOWEL PREP [Suspect]
     Active Substance: MAGNESIUM SULFATE\POTASSIUM SULFATE\SODIUM SULFATE
     Indication: COLONOSCOPY
     Dosage: 2 X 6 OZ. BOTTLE
     Route: 048
     Dates: start: 20191208, end: 20191208

REACTIONS (3)
  - Anal injury [None]
  - Diarrhoea [None]
  - Anal inflammation [None]

NARRATIVE: CASE EVENT DATE: 20191209
